FAERS Safety Report 11680040 (Version 3)
Quarter: 2015Q4

REPORT INFORMATION
  Report Type: Spontaneous
  Country: US (occurrence: US)
  Receive Date: 20151027
  Receipt Date: 20151110
  Transmission Date: 20160304
  Serious: No
  Sender: FDA-Public Use
  Company Number: US-ELI_LILLY_AND_COMPANY-US201007006493

PATIENT
  Age: 70 Year
  Sex: Female

DRUGS (26)
  1. FORTEO [Suspect]
     Active Substance: TERIPARATIDE
     Dosage: 20 UG, QD
     Route: 065
  2. OSCAL 500-D [Concomitant]
  3. PERCOCET [Concomitant]
     Active Substance: ACETAMINOPHEN\OXYCODONE HYDROCHLORIDE
  4. FORTEO [Suspect]
     Active Substance: TERIPARATIDE
     Dosage: 20 UG, DAILY (1/D)
     Route: 065
  5. SINGULAIR [Concomitant]
     Active Substance: MONTELUKAST SODIUM
  6. CRESTOR [Concomitant]
     Active Substance: ROSUVASTATIN CALCIUM
  7. FORTEO [Suspect]
     Active Substance: TERIPARATIDE
     Dosage: 20 UG, QD
     Route: 065
  8. FORTEO [Suspect]
     Active Substance: TERIPARATIDE
     Dosage: 20 UG, QD
  9. XANAX [Concomitant]
     Active Substance: ALPRAZOLAM
  10. MAXAIR [Concomitant]
     Active Substance: PIRBUTEROL ACETATE
  11. FLORINEF ACETATE [Concomitant]
     Active Substance: FLUDROCORTISONE ACETATE
  12. KLONOPIN [Concomitant]
     Active Substance: CLONAZEPAM
  13. MIDODRINE [Concomitant]
     Active Substance: MIDODRINE
  14. BENTYL [Concomitant]
     Active Substance: DICYCLOMINE HYDROCHLORIDE
  15. FORTEO [Suspect]
     Active Substance: TERIPARATIDE
     Indication: OSTEOPOROSIS
     Dosage: 20 UG, DAILY (1/D)
     Route: 065
     Dates: start: 20100713
  16. CALCIUM [Concomitant]
     Active Substance: CALCIUM
     Dosage: UNK, UNKNOWN
  17. ROBAXIN [Concomitant]
     Active Substance: METHOCARBAMOL
  18. PREVACID [Concomitant]
     Active Substance: LANSOPRAZOLE
  19. FORADIL [Concomitant]
     Active Substance: FORMOTEROL FUMARATE
     Indication: ASTHMA
  20. ALLEGRA [Concomitant]
     Active Substance: FEXOFENADINE HYDROCHLORIDE
  21. PHENERGAN [Concomitant]
     Active Substance: PROMETHAZINE HYDROCHLORIDE
     Indication: NAUSEA
  22. CENTRUM SILVER [Concomitant]
     Active Substance: MINERALS\VITAMINS
  23. TEGRETOL [Concomitant]
     Active Substance: CARBAMAZEPINE
  24. COUMADIN [Concomitant]
     Active Substance: WARFARIN SODIUM
  25. LOMOTIL [Concomitant]
     Active Substance: ATROPINE SULFATE\DIPHENOXYLATE HYDROCHLORIDE
  26. NITRO-SPRAY [Concomitant]
     Active Substance: ISOSORBIDE DINITRATE
     Indication: CARDIAC DISORDER
     Route: 048

REACTIONS (28)
  - Atrial fibrillation [Unknown]
  - Thoracic vertebral fracture [Unknown]
  - Bone pain [Not Recovered/Not Resolved]
  - Feeling abnormal [Unknown]
  - Lumbar vertebral fracture [Unknown]
  - Contusion [Recovering/Resolving]
  - Palpitations [Unknown]
  - Cardiac disorder [Unknown]
  - Blood pressure increased [Not Recovered/Not Resolved]
  - Thinking abnormal [Unknown]
  - Dizziness [Not Recovered/Not Resolved]
  - Visual impairment [Unknown]
  - Blood pressure decreased [Not Recovered/Not Resolved]
  - Back pain [Unknown]
  - Injection site haemorrhage [Unknown]
  - Oesophageal stenosis [Unknown]
  - Malaise [Unknown]
  - Injection site bruising [Recovering/Resolving]
  - Nausea [Not Recovered/Not Resolved]
  - Drug dose omission [Unknown]
  - Blood pressure fluctuation [Recovered/Resolved]
  - Heart rate increased [Not Recovered/Not Resolved]
  - Panic attack [Recovering/Resolving]
  - Gastric disorder [Unknown]
  - Musculoskeletal pain [Not Recovered/Not Resolved]
  - Musculoskeletal chest pain [Unknown]
  - Injection site erythema [Unknown]
  - Injection site pain [Unknown]

NARRATIVE: CASE EVENT DATE: 20100713
